FAERS Safety Report 17718454 (Version 1)
Quarter: 2020Q2

REPORT INFORMATION
  Report Type: Spontaneous
  Country: FR (occurrence: FR)
  Receive Date: 20200428
  Receipt Date: 20200428
  Transmission Date: 20200714
  Serious: Yes (Other)
  Sender: FDA-Public Use
  Company Number: FR-MYLANLABS-2019M1106628

PATIENT
  Age: 46 Year
  Sex: Female

DRUGS (2)
  1. TAMOXIFENE MYLAN 20 MG, COMPRIM? [Suspect]
     Active Substance: TAMOXIFEN
     Indication: BREAST CANCER
     Dosage: 20 MILLIGRAM, QD
     Route: 048
     Dates: start: 20190506, end: 20190506
  2. COMPLEMENT [Concomitant]
     Active Substance: NAPROXEN SODIUM
     Indication: HYPOVITAMINOSIS
     Dosage: UNK
     Route: 048
     Dates: start: 20190504, end: 20190506

REACTIONS (2)
  - Psoriasis [Recovered/Resolved]
  - Rash pruritic [Recovered/Resolved]

NARRATIVE: CASE EVENT DATE: 20190507
